FAERS Safety Report 9936033 (Version 1)
Quarter: 2014Q1

REPORT INFORMATION
  Report Type: Spontaneous
  Country: IN (occurrence: IN)
  Receive Date: 20140228
  Receipt Date: 20140228
  Transmission Date: 20141002
  Serious: Yes (Death, Other)
  Sender: FDA-Public Use
  Company Number: PHHY2014IN025019

PATIENT
  Age: 55 Year
  Sex: Male

DRUGS (4)
  1. CICLOSPORIN [Suspect]
     Indication: IMMUNOSUPPRESSION
  2. PREDNISOLONE [Suspect]
     Indication: IMMUNOSUPPRESSION
  3. AZATHIOPRINE [Suspect]
     Indication: IMMUNOSUPPRESSION
  4. CHOP [Suspect]

REACTIONS (12)
  - Death [Fatal]
  - Post transplant lymphoproliferative disorder [Unknown]
  - Depressed level of consciousness [Recovered/Resolved]
  - Abdominal distension [Unknown]
  - Abdominal pain [Unknown]
  - Pyrexia [Unknown]
  - Abdominal mass [Unknown]
  - Lymphoma [Unknown]
  - Convulsion [Unknown]
  - Postictal state [Unknown]
  - Hyponatraemia [Recovered/Resolved]
  - Urinary tract infection [Recovered/Resolved]
